FAERS Safety Report 7911867-4 (Version None)
Quarter: 2011Q4

REPORT INFORMATION
  Report Type: 
  Country: None (occurrence: None)
  Receive Date: 20111114
  Receipt Date: 20111110
  Transmission Date: 20120403
  Serious: Yes (Other)
  Sender: FDA-Public Use
  Company Number: US-TEVA-304635USA

PATIENT
  Sex: Female

DRUGS (2)
  1. DROSPIRENONE AND ETHINYL ESTRADIOL [Concomitant]
  2. CLARAVIS [Suspect]
     Dosage: 20 AND 40 MG
     Route: 048
     Dates: start: 20110616, end: 20111010

REACTIONS (2)
  - ABORTION SPONTANEOUS [None]
  - UNINTENDED PREGNANCY [None]
